FAERS Safety Report 20789599 (Version 1)
Quarter: 2022Q2

REPORT INFORMATION
  Report Type: Spontaneous
  Country: US (occurrence: US)
  Receive Date: 20220505
  Receipt Date: 20220505
  Transmission Date: 20220720
  Serious: No
  Sender: FDA-Public Use
  Company Number: US-HORIZON THERAPEUTICS-HZN-2022-002964

PATIENT
  Sex: Female

DRUGS (1)
  1. DUEXIS [Suspect]
     Active Substance: FAMOTIDINE\IBUPROFEN
     Indication: Ankylosing spondylitis
     Dosage: 1 DOSAGE FORM (800MG-26.6MG), BID
     Route: 048

REACTIONS (3)
  - Eye disorder [Unknown]
  - Dry eye [Unknown]
  - Off label use [Unknown]
